FAERS Safety Report 8145051 (Version 2)
Quarter: 2025Q1

REPORT INFORMATION
  Report Type: Spontaneous
  Country: DK (occurrence: DK)
  Receive Date: 20110920
  Receipt Date: 20250220
  Transmission Date: 20250408
  Serious: Yes (Death, Life-Threatening, Hospitalization)
  Sender: TEVA
  Company Number: DK-DKMA-20050479

PATIENT
  Age: 96 Year
  Sex: Female
  Weight: 47 kg

DRUGS (4)
  1. METHOTREXATE [Interacting]
     Active Substance: METHOTREXATE
     Indication: Psoriasis
     Dosage: 2.5 MILLIGRAM(S)
     Route: 048
     Dates: start: 20050202
  2. MEMANTINE HYDROCHLORIDE [Interacting]
     Active Substance: MEMANTINE HYDROCHLORIDE
     Indication: Dementia Alzheimer^s type
     Dosage: 10 MILLIGRAM(S), 28103322501 EBIXA
     Route: 048
     Dates: start: 20031218
  3. DIPYRIDAMOLE [Concomitant]
     Active Substance: DIPYRIDAMOLE
     Indication: Acute myocardial infarction
     Dosage: 200 MILLIGRAM(S), 28101849296 PERSANTIN RETARD
     Route: 048
     Dates: start: 20031218
  4. ASPIRIN\DIPYRIDAMOLE [Concomitant]
     Active Substance: ASPIRIN\DIPYRIDAMOLE
     Indication: Myocardial infarction
     Route: 048
     Dates: start: 20031218

REACTIONS (3)
  - Leukopenia [Fatal]
  - Granulocytopenia [Fatal]
  - Thrombocytopenia [Fatal]

NARRATIVE: CASE EVENT DATE: 20050301
